FAERS Safety Report 4920946-5 (Version None)
Quarter: 2006Q1

REPORT INFORMATION
  Report Type: 
  Country: None (occurrence: None)
  Receive Date: 20060113
  Receipt Date: 20050919
  Transmission Date: 20060701
  Serious: No
  Sender: FDA-Public Use
  Company Number: 2005SP003107

PATIENT
  Age: 60 Year
  Sex: Male

DRUGS (4)
  1. LUNESTA [Suspect]
     Indication: INSOMNIA
     Dosage: 5 MG;HS;ORAL
     Route: 048
     Dates: start: 20050910, end: 20050919
  2. AMBIEN [Concomitant]
  3. GLUCOPHAGE [Concomitant]
  4. CORTISONE ACETATE TAB [Concomitant]

REACTIONS (2)
  - DRUG INEFFECTIVE [None]
  - INSOMNIA [None]
